FAERS Safety Report 5371040-3 (Version None)
Quarter: 2007Q2

REPORT INFORMATION
  Report Type: 
  Country: None (occurrence: None)
  Receive Date: 20070626
  Receipt Date: 20070614
  Transmission Date: 20071010
  Serious: Yes (Other)
  Sender: FDA-Public Use
  Company Number: GB-PFIZER INC-2007049327

PATIENT
  Age: 62 Year
  Sex: Male
  Weight: 79 kg

DRUGS (5)
  1. VORICONAZOLE [Suspect]
     Indication: ANTIFUNGAL PROPHYLAXIS
     Dosage: DAILY DOSE:200MG
     Route: 048
     Dates: start: 20070508, end: 20070529
  2. ACYCLOVIR [Concomitant]
     Route: 048
  3. ALLOPURINOL [Concomitant]
     Route: 048
  4. OMEPRAZOLE [Concomitant]
     Route: 048
  5. PENICILLIN [Concomitant]
     Route: 048

REACTIONS (2)
  - BUNDLE BRANCH BLOCK RIGHT [None]
  - HEART RATE IRREGULAR [None]
